FAERS Safety Report 5131188-5 (Version None)
Quarter: 2006Q4

REPORT INFORMATION
  Report Type: 
  Country: None (occurrence: None)
  Receive Date: 20061017
  Receipt Date: 20061017
  Transmission Date: 20070319
  Serious: Yes (Other)
  Sender: FDA-Public Use
  Company Number: None

PATIENT
  Sex: Female
  Weight: 61.2356 kg

DRUGS (2)
  1. SEPTOCAINE [Suspect]
     Dosage: 1-100,00 PARTS
     Dates: start: 20061004, end: 20061004
  2. CITANEST [Suspect]

REACTIONS (5)
  - HYPOAESTHESIA [None]
  - HYPOAESTHESIA ORAL [None]
  - PARAESTHESIA [None]
  - POST PROCEDURAL COMPLICATION [None]
  - TOOTH DISORDER [None]
